FAERS Safety Report 7821841-4 (Version None)
Quarter: 2011Q4

REPORT INFORMATION
  Report Type: 
  Country: None (occurrence: None)
  Receive Date: 20111018
  Receipt Date: 20101119
  Transmission Date: 20120403
  Serious: No
  Sender: FDA-Public Use
  Company Number: US-ASTRAZENECA-2010SE55291

PATIENT
  Age: 47 Year
  Sex: Male

DRUGS (9)
  1. SYMBICORT [Suspect]
     Dosage: TWO PUFFS BID
     Route: 055
  2. ZYRTEC [Concomitant]
  3. METOPROLOL TARTRATE [Concomitant]
  4. RISPERDAL [Concomitant]
  5. ALBUTEROL [Concomitant]
  6. AMLODIPINE [Concomitant]
  7. ALPRAZOLAM [Concomitant]
  8. LISINOPRIL [Concomitant]
  9. LEXAPRO [Concomitant]

REACTIONS (3)
  - DYSPNOEA [None]
  - MEMORY IMPAIRMENT [None]
  - DRUG DOSE OMISSION [None]
